FAERS Safety Report 20311170 (Version 1)
Quarter: 2022Q1

REPORT INFORMATION
  Report Type: Spontaneous
  Country: FR (occurrence: FR)
  Receive Date: 20220107
  Receipt Date: 20220107
  Transmission Date: 20220423
  Serious: Yes (Other)
  Sender: FDA-Public Use
  Company Number: FR-JAZZ-2022-FR-000027

PATIENT
  Age: 51 Year
  Sex: Male

DRUGS (4)
  1. ASPARAGINASE [Suspect]
     Active Substance: ASPARAGINASE
     Indication: Acute lymphocytic leukaemia
     Dosage: 6000 UI/M2 ON DAYS 8, 10, 12, 20, 22, AND 24
     Route: 042
  2. VINCRISTINE [Suspect]
     Active Substance: VINCRISTINE
     Indication: Acute lymphocytic leukaemia
     Dosage: D1, D8, D15, AND D22
  3. DAUNORUBICIN [Suspect]
     Active Substance: DAUNORUBICIN
     Indication: Acute lymphocytic leukaemia
     Dosage: D1 D2 D3 AND D15 D16
  4. CYCLOPHOSPHAMIDE [Suspect]
     Active Substance: CYCLOPHOSPHAMIDE
     Indication: Acute lymphocytic leukaemia
     Dosage: D1 AND D15

REACTIONS (6)
  - Brain oedema [Recovering/Resolving]
  - Hepatotoxicity [Recovering/Resolving]
  - Hepatic encephalopathy [Recovering/Resolving]
  - Coma [Recovering/Resolving]
  - Cerebral venous thrombosis [Recovering/Resolving]
  - Hyperammonaemic encephalopathy [Recovering/Resolving]
